FAERS Safety Report 5227002-X (Version None)
Quarter: 2007Q1

REPORT INFORMATION
  Report Type: 
  Country: None (occurrence: None)
  Receive Date: 20070201
  Receipt Date: 20070201
  Transmission Date: 20070707
  Serious: Yes (Life-Threatening, Hospitalization, Disabling, Other)
  Sender: FDA-Public Use
  Company Number: None

PATIENT
  Age: 16 Year
  Sex: Male
  Weight: 44.4525 kg

DRUGS (1)
  1. HALDOL [Suspect]
     Dosage: 10MG TO 30MG ONCE INJECTION
     Dates: start: 20050702

REACTIONS (12)
  - BALANCE DISORDER [None]
  - COMA [None]
  - CONVULSION [None]
  - EPILEPSY [None]
  - HEPATIC FUNCTION ABNORMAL [None]
  - HYPERTENSION [None]
  - MACROGLOSSIA [None]
  - MUSCULOSKELETAL STIFFNESS [None]
  - PSYCHOTIC DISORDER [None]
  - PYREXIA [None]
  - RENAL IMPAIRMENT [None]
  - YELLOW SKIN [None]
